FAERS Safety Report 7988678-7 (Version None)
Quarter: 2011Q4

REPORT INFORMATION
  Report Type: 
  Country: None (occurrence: None)
  Receive Date: 20111218
  Receipt Date: 20111206
  Transmission Date: 20120403
  Serious: Yes (Hospitalization, Other)
  Sender: FDA-Public Use
  Company Number: US-ELI_LILLY_AND_COMPANY-US201112003040

PATIENT
  Age: 53 Year
  Sex: Female

DRUGS (2)
  1. DULOXETINE HYDROCHLORIDE [Suspect]
     Indication: DEPRESSION
     Dosage: UNK, UNKNOWN
     Route: 065
     Dates: end: 20100301
  2. LISINOPRIL [Concomitant]
     Dosage: UNK, UNKNOWN
     Route: 065

REACTIONS (8)
  - CRYING [None]
  - DRUG INTERACTION [None]
  - BONE PAIN [None]
  - DEPRESSION [None]
  - LOSS OF CONSCIOUSNESS [None]
  - ANXIETY [None]
  - URINARY TRACT INFECTION [None]
  - DRUG INEFFECTIVE [None]
